FAERS Safety Report 8572243-7 (Version None)
Quarter: 2012Q3

REPORT INFORMATION
  Report Type: 
  Country: None (occurrence: None)
  Receive Date: 20120806
  Receipt Date: 20120731
  Transmission Date: 20120928
  Serious: Yes (Death)
  Sender: FDA-Public Use
  Company Number: US-ASTELLAS-2012US006622

PATIENT
  Sex: Female

DRUGS (2)
  1. CELLCEPT [Concomitant]
     Indication: LIVER TRANSPLANT
     Dosage: 500 MG, BID
     Route: 048
     Dates: start: 19850101, end: 20120603
  2. PROGRAF [Suspect]
     Indication: LIVER TRANSPLANT
     Dosage: 0.5 MG, BID
     Route: 048
     Dates: start: 20050101, end: 20120603

REACTIONS (1)
  - RENAL FAILURE [None]
